FAERS Safety Report 23629837 (Version 1)
Quarter: 2024Q1

REPORT INFORMATION
  Report Type: Spontaneous
  Country: US (occurrence: US)
  Receive Date: 20240314
  Receipt Date: 20240314
  Transmission Date: 20240410
  Serious: No
  Sender: FDA-Public Use
  Company Number: US-CIPLA LTD.-2024US00024

PATIENT

DRUGS (2)
  1. SERTRALINE [Suspect]
     Active Substance: SERTRALINE HYDROCHLORIDE
     Indication: Anxiety
     Dosage: 75MG (3 TABLETS), DAILY
     Route: 048
     Dates: start: 2020
  2. SERTRALINE [Suspect]
     Active Substance: SERTRALINE HYDROCHLORIDE
     Indication: Depression
     Dosage: 75MG (3 TABLETS), DAILY
     Route: 048
     Dates: start: 202312

REACTIONS (5)
  - Drug ineffective [Unknown]
  - Product quality issue [Unknown]
  - Product outer packaging issue [Unknown]
  - Product colour issue [Unknown]
  - Depressed mood [Unknown]

NARRATIVE: CASE EVENT DATE: 20231201
